FAERS Safety Report 5328004-5 (Version None)
Quarter: 2007Q2

REPORT INFORMATION
  Report Type: 
  Country: None (occurrence: None)
  Receive Date: 20070517
  Receipt Date: 20070504
  Transmission Date: 20071010
  Serious: Yes (Other)
  Sender: FDA-Public Use
  Company Number: US-SHR-US-2006-032143

PATIENT
  Age: 48 Year
  Sex: Female

DRUGS (1)
  1. BETASERON [Suspect]
     Indication: RELAPSING-REMITTING MULTIPLE SCLEROSIS
     Dosage: 8 MIU, EVERY 2D
     Route: 058
     Dates: start: 20030707

REACTIONS (5)
  - BIOPSY UTERUS ABNORMAL [None]
  - MENORRHAGIA [None]
  - MENSTRUATION IRREGULAR [None]
  - OVARIAN CYST [None]
  - UTERINE LEIOMYOMA [None]
